FAERS Safety Report 5300199-9 (Version None)
Quarter: 2007Q2

REPORT INFORMATION
  Report Type: 
  Country: None (occurrence: None)
  Receive Date: 20070411
  Receipt Date: 20070406
  Transmission Date: 20071010
  Serious: Yes (Other)
  Sender: FDA-Public Use
  Company Number: S07-USA-01048-01

PATIENT
  Age: 68 Year
  Sex: Female

DRUGS (1)
  1. THYROLAR-2 [Suspect]
     Indication: HYPOTHYROIDISM
     Dosage: 1 TABLET QD PO
     Route: 048
     Dates: start: 20061001

REACTIONS (3)
  - BALANCE DISORDER [None]
  - DEAFNESS BILATERAL [None]
  - MIDDLE EAR EFFUSION [None]
